FAERS Safety Report 8839905 (Version 2)
Quarter: 2012Q4

REPORT INFORMATION
  Report Type: 
  Country: US (occurrence: US)
  Receive Date: 20121015
  Receipt Date: 20121219
  Transmission Date: 20130627
  Serious: Yes (Hospitalization)
  Sender: FDA-Public Use
  Company Number: PHEH2012US020042

PATIENT
  Age: 56 Year
  Sex: Female
  Weight: 117.91 kg

DRUGS (20)
  1. GILENYA [Suspect]
     Dosage: 0.5 Mg, daily
     Route: 048
  2. CYMBALTA [Concomitant]
     Dosage: 60 mg, UNK
  3. CELEBREX [Concomitant]
     Dosage: 100 mg, UNK
  4. FUROSEMIDE [Concomitant]
     Dosage: 20 mg, UNK
  5. NEURONTIN [Concomitant]
     Dosage: 300 mg, UNK
  6. LYRICA [Concomitant]
     Dosage: 200 mg, UNK
  7. METFORMIN [Concomitant]
     Dosage: 500 mg, UNK
  8. OXYBUTYNIN [Concomitant]
     Dosage: 10 mg, UNK
  9. BACLOFEN [Concomitant]
     Dosage: 20 mg, UNK
  10. VITAMIN C [Concomitant]
     Dosage: 500 mg, TID
  11. KLOR-CON [Concomitant]
     Dosage: 10 MEq, UNK (10 tablets)
  12. VITAMIN D3 [Concomitant]
     Dosage: UNK UKN, UNK
  13. ACIDOPHILUS [Concomitant]
     Dosage: 100 mg, UNK
  14. VITAMIN B12 [Concomitant]
     Dosage: 1000 CR
  15. MAGNESIUM [Concomitant]
     Dosage: 400 mg, UNK
  16. CALCIUM [Concomitant]
     Dosage: 500 (unknown units)
  17. PROAIR HFA [Concomitant]
     Dosage: UNK UKN, UNK
  18. FISH OIL [Concomitant]
     Dosage: UNK UKN, UNK
  19. MIRALAX [Concomitant]
     Dosage: 3350 NF
  20. ZANAFLEX [Concomitant]
     Dosage: 2 mg, UNK

REACTIONS (4)
  - Lower limb fracture [Unknown]
  - Fall [Unknown]
  - Urinary tract infection [Unknown]
  - Pneumonia [Unknown]
